FAERS Safety Report 5455568-3 (Version None)
Quarter: 2007Q3

REPORT INFORMATION
  Report Type: 
  Country: None (occurrence: None)
  Receive Date: 20070918
  Receipt Date: 20070228
  Transmission Date: 20080115
  Serious: Yes (Disabling)
  Sender: FDA-Public Use
  Company Number: US-ASTRAZENECA-2006UW21744

PATIENT
  Sex: Female
  Weight: 101.4 kg

DRUGS (11)
  1. SEROQUEL [Suspect]
     Indication: SCHIZOPHRENIA
     Route: 048
     Dates: start: 20040503
  2. SEROQUEL [Suspect]
     Indication: DEPRESSION
     Route: 048
     Dates: start: 20040503
  3. SEROQUEL [Suspect]
     Indication: ANXIETY
     Route: 048
     Dates: start: 20040503
  4. SEROQUEL [Suspect]
     Route: 048
     Dates: start: 20040702
  5. SEROQUEL [Suspect]
     Route: 048
     Dates: start: 20040702
  6. SEROQUEL [Suspect]
     Route: 048
     Dates: start: 20040702
  7. ABILIFY [Concomitant]
     Dates: start: 20040101
  8. GEODON [Concomitant]
     Dates: start: 20050720
  9. HALDOL [Concomitant]
  10. ZYPREXA [Concomitant]
     Dates: start: 20040120
  11. CLONAZEPAM [Concomitant]
     Dosage: HALF PILL TWICE/DAY
     Dates: start: 20060924

REACTIONS (2)
  - DIABETES MELLITUS [None]
  - TARDIVE DYSKINESIA [None]
